FAERS Safety Report 15428810 (Version 1)
Quarter: 2018Q3

REPORT INFORMATION
  Report Type: Spontaneous
  Country: US (occurrence: US)
  Receive Date: 20180926
  Receipt Date: 20180926
  Transmission Date: 20181010
  Serious: No
  Sender: FDA-Public Use
  Company Number: US-BAYER-2018-179104

PATIENT
  Age: 75 Year
  Sex: Male
  Weight: 78.46 kg

DRUGS (2)
  1. MORPHIN [Concomitant]
     Active Substance: MORPHINE
     Dosage: UNK
  2. MIRALAX [Suspect]
     Active Substance: POLYETHYLENE GLYCOL 3350
     Indication: GASTROINTESTINAL DISORDER
     Dosage: 1 DF, OM

REACTIONS (2)
  - Poor quality drug administered [Unknown]
  - Product physical issue [Unknown]
